FAERS Safety Report 4787033-0 (Version None)
Quarter: 2005Q4

REPORT INFORMATION
  Report Type: 
  Country: None (occurrence: None)
  Receive Date: 20051004
  Receipt Date: 20050922
  Transmission Date: 20060501
  Serious: Yes (Hospitalization)
  Sender: FDA-Public Use
  Company Number: JP-JNJFOC-20050406208

PATIENT
  Sex: Male
  Weight: 49.6 kg

DRUGS (6)
  1. REMICADE [Suspect]
     Route: 042
  2. REMICADE [Suspect]
     Route: 042
  3. REMICADE [Suspect]
     Route: 042
  4. REMICADE [Suspect]
     Indication: CROHN'S DISEASE
     Route: 042
  5. PENTASA [Suspect]
     Indication: CROHN'S DISEASE
     Dosage: 9 TABLETS
  6. RHEUMATREX [Concomitant]

REACTIONS (1)
  - THYROIDITIS SUBACUTE [None]
